FAERS Safety Report 4524563-0 (Version None)
Quarter: 2004Q4

REPORT INFORMATION
  Report Type: 
  Country: None (occurrence: None)
  Receive Date: 20041117
  Receipt Date: 20040618
  Transmission Date: 20050328
  Serious: Yes (Life-Threatening, Other)
  Sender: FDA-Public Use
  Company Number: US-JNJFOC-20040402717

PATIENT
  Age: 20 Year
  Sex: Male
  Weight: 99.7913 kg

DRUGS (2)
  1. LEVAQUIN [Suspect]
     Indication: BRONCHITIS
     Dosage: 500 MG, 1IN 1 DAY, ORAL
     Route: 048
  2. LEVAQUIN [Suspect]
     Indication: SINUSITIS
     Dosage: 500 MG, 1IN 1 DAY, ORAL
     Route: 048

REACTIONS (1)
  - ANAPHYLACTIC SHOCK [None]
